FAERS Safety Report 24242645 (Version 1)
Quarter: 2024Q3

REPORT INFORMATION
  Report Type: Spontaneous
  Country: US (occurrence: US)
  Receive Date: 20240823
  Receipt Date: 20240823
  Transmission Date: 20241016
  Serious: No
  Sender: ABBVIE
  Company Number: US-ABBVIE-5883704

PATIENT
  Sex: Female

DRUGS (1)
  1. ELAGOLIX [Suspect]
     Active Substance: ELAGOLIX
     Indication: Product used for unknown indication
     Route: 048

REACTIONS (1)
  - Condition aggravated [Unknown]
